FAERS Safety Report 11928620 (Version 1)
Quarter: 2016Q1

REPORT INFORMATION
  Report Type: Spontaneous
  Country: US (occurrence: US)
  Receive Date: 20160119
  Receipt Date: 20160119
  Transmission Date: 20160526
  Serious: No
  Sender: FDA-Public Use
  Company Number: US-GLAXOSMITHKLINE-US2016006067

PATIENT
  Age: 40 Year
  Sex: Male

DRUGS (3)
  1. ENTYVIO [Concomitant]
     Active Substance: VEDOLIZUMAB
  2. SULFASALAZINE. [Concomitant]
     Active Substance: SULFASALAZINE
  3. WELLBUTRIN [Suspect]
     Active Substance: BUPROPION HYDROCHLORIDE
     Indication: SMOKING CESSATION THERAPY
     Dosage: 300 MG, 1D
     Dates: start: 2014

REACTIONS (2)
  - Off label use [Unknown]
  - Drug screen positive [Not Recovered/Not Resolved]

NARRATIVE: CASE EVENT DATE: 2014
